FAERS Safety Report 5176452-9 (Version None)
Quarter: 2006Q4

REPORT INFORMATION
  Report Type: 
  Country: None (occurrence: None)
  Receive Date: 20061207
  Receipt Date: 20061122
  Transmission Date: 20070319
  Serious: Yes (Hospitalization)
  Sender: FDA-Public Use
  Company Number: 2006RR-04626

PATIENT
  Age: 40 Year
  Sex: Female

DRUGS (2)
  1. MINOCYCLINE HYDROCHLORIDE [Suspect]
     Indication: ACNE
     Dosage: 100MG, QD, UNK
  2. ESTROPROGESTERONE [Concomitant]

REACTIONS (1)
  - POLYARTERITIS NODOSA [None]
